FAERS Safety Report 14880513 (Version 1)
Quarter: 2018Q2

REPORT INFORMATION
  Report Type: Spontaneous
  Country: US (occurrence: US)
  Receive Date: 20180511
  Receipt Date: 20180511
  Transmission Date: 20180711
  Serious: No
  Sender: FDA-Public Use
  Company Number: US-GLAXOSMITHKLINE-US2018077616

PATIENT
  Sex: Female

DRUGS (8)
  1. IRON [Concomitant]
     Active Substance: IRON
  2. PLAQUENIL [Concomitant]
     Active Substance: HYDROXYCHLOROQUINE SULFATE
  3. VITAMIN B12 [Concomitant]
     Active Substance: CYANOCOBALAMIN
  4. FISH OIL CAPSULE [Concomitant]
  5. METHOTREXATE. [Concomitant]
     Active Substance: METHOTREXATE
  6. BENLYSTA [Suspect]
     Active Substance: BELIMUMAB
     Indication: SYSTEMIC LUPUS ERYTHEMATOSUS
     Dosage: 120 MG, EVERY 4 WEEKS
     Route: 042
  7. ACYCLOVIR. [Concomitant]
     Active Substance: ACYCLOVIR
  8. VITAMIN D3 [Concomitant]
     Active Substance: CHOLECALCIFEROL

REACTIONS (1)
  - Drug effect decreased [Not Recovered/Not Resolved]
